FAERS Safety Report 17541846 (Version 1)
Quarter: 2020Q1

REPORT INFORMATION
  Report Type: Spontaneous
  Country: US (occurrence: US)
  Receive Date: 20200313
  Receipt Date: 20200313
  Transmission Date: 20200409
  Serious: No
  Sender: FDA-Public Use
  Company Number: US-GALDERMA-US19062028

PATIENT
  Age: 26 Year
  Sex: Female

DRUGS (16)
  1. PROACTIV MD ADAPALENE ACNE TREATMENT [Suspect]
     Active Substance: ADAPALENE
     Indication: ACNE CYSTIC
     Dosage: 0.1%
     Route: 061
     Dates: start: 20190222, end: 201903
  2. PROACTIV MD ADAPALENE ACNE TREATMENT [Suspect]
     Active Substance: ADAPALENE
     Indication: ACNE
  3. ADAPALENE GEL [Concomitant]
     Active Substance: ADAPALENE
     Indication: ACNE CYSTIC
     Dosage: 0.3%
     Route: 061
  4. SPIRONOLACTONE. [Concomitant]
     Active Substance: SPIRONOLACTONE
     Indication: PRODUCT USED FOR UNKNOWN INDICATION
     Route: 048
  5. PROACTIV EYE BRIGHTENING SERUM [Concomitant]
     Active Substance: COSMETICS
     Indication: ACNE
  6. PROACTIV MD BALANCING TONER [Concomitant]
     Active Substance: COSMETICS
     Indication: ACNE CYSTIC
     Route: 061
     Dates: start: 20190222, end: 201903
  7. PROACTIV MD BALANCING TONER [Concomitant]
     Active Substance: COSMETICS
     Indication: ACNE
  8. PROACTIV EYE BRIGHTENING SERUM [Concomitant]
     Active Substance: COSMETICS
     Indication: ACNE CYSTIC
     Route: 061
     Dates: start: 20190222, end: 201903
  9. PROACTIV GREEN TEA MOISTURIZER [Concomitant]
     Active Substance: COSMETICS
     Indication: ACNE CYSTIC
     Route: 061
     Dates: start: 20190222, end: 201903
  10. PROACTIV MD DAILY OIL CONTROL SPF 30 [Suspect]
     Active Substance: AVOBENZONE\OCTISALATE\OCTOCRYLENE
     Indication: ACNE CYSTIC
     Route: 061
     Dates: start: 20190222, end: 201903
  11. PROACTIV MD DAILY OIL CONTROL SPF 30 [Suspect]
     Active Substance: AVOBENZONE\OCTISALATE\OCTOCRYLENE
     Indication: ACNE
  12. PROACTIV MD DEEP CLEANSING FACE WASH [Concomitant]
     Active Substance: COSMETICS
     Indication: ACNE CYSTIC
     Route: 061
     Dates: start: 20190222, end: 201903
  13. DAILY VITAMIN [Concomitant]
     Active Substance: VITAMINS
  14. PROACTIV GREEN TEA MOISTURIZER [Concomitant]
     Active Substance: COSMETICS
     Indication: ACNE
  15. PROACTIV MD DEEP CLEANSING FACE WASH [Concomitant]
     Active Substance: COSMETICS
     Indication: ACNE
  16. ADAPALENE GEL [Concomitant]
     Active Substance: ADAPALENE
     Indication: ACNE

REACTIONS (3)
  - Sensitive skin [Recovered/Resolved]
  - Dry skin [Recovered/Resolved]
  - Skin irritation [Recovered/Resolved]

NARRATIVE: CASE EVENT DATE: 20190307
